FAERS Safety Report 15127418 (Version 5)
Quarter: 2018Q4

REPORT INFORMATION
  Report Type: Report from Study
  Country: US (occurrence: US)
  Receive Date: 20180710
  Receipt Date: 20181009
  Transmission Date: 20190204
  Serious: Yes (Death, Hospitalization, Disabling)
  Sender: FDA-Public Use
  Company Number: US-ACTELION-A-NJ2018-173651

PATIENT
  Age: 53 Year
  Sex: Male
  Weight: 84.35 kg

DRUGS (6)
  1. UPTRAVI [Suspect]
     Active Substance: SELEXIPAG
     Indication: PULMONARY ARTERIAL HYPERTENSION
     Dosage: 600 MCG, BID
     Route: 048
  2. UPTRAVI [Suspect]
     Active Substance: SELEXIPAG
     Dosage: 1200 MCG, BID
     Route: 048
  3. ADEMPAS [Concomitant]
     Active Substance: RIOCIGUAT
  4. UPTRAVI [Suspect]
     Active Substance: SELEXIPAG
     Dosage: 1000 MCG, BID
     Route: 048
  5. UPTRAVI [Suspect]
     Active Substance: SELEXIPAG
     Dosage: 200 MCG, TID
     Route: 048
     Dates: start: 20180426, end: 20180730
  6. XARELTO [Concomitant]
     Active Substance: RIVAROXABAN

REACTIONS (12)
  - Condition aggravated [Fatal]
  - Constipation [Recovered/Resolved]
  - Rectal haemorrhage [Unknown]
  - Dizziness [Not Recovered/Not Resolved]
  - Blood pressure fluctuation [Unknown]
  - Pulmonary hypertension [Fatal]
  - Right ventricular failure [Fatal]
  - Cough [Unknown]
  - Nausea [Unknown]
  - Weight increased [Unknown]
  - Diarrhoea [Unknown]
  - Pulmonary embolism [Fatal]

NARRATIVE: CASE EVENT DATE: 20180807
